FAERS Safety Report 11623918 (Version 1)
Quarter: 2015Q4

REPORT INFORMATION
  Report Type: Spontaneous
  Country: US (occurrence: US)
  Receive Date: 20151013
  Receipt Date: 20151013
  Transmission Date: 20160304
  Serious: No
  Sender: FDA-Public Use
  Company Number: US-JNJFOC-20150822911

PATIENT
  Age: 52 Year
  Sex: Male
  Weight: 83.92 kg

DRUGS (4)
  1. MENS ROGAINE EXTRA STRENGTH [Suspect]
     Active Substance: MINOXIDIL
     Indication: ALOPECIA
     Dosage: APPLIED LIBERALLY ON THE HEAD
     Route: 061
     Dates: start: 20150505
  2. VIRAMUNE [Concomitant]
     Active Substance: NEVIRAPINE
     Indication: HIV INFECTION
     Dosage: 15 YEARS
     Route: 065
  3. COMBIVIR [Concomitant]
     Active Substance: LAMIVUDINE\ZIDOVUDINE
     Indication: HIV INFECTION
     Dosage: 15 YEARS
     Route: 065
  4. MENS ROGAINE EXTRA STRENGTH [Suspect]
     Active Substance: MINOXIDIL
     Route: 061

REACTIONS (2)
  - Incorrect dose administered [Unknown]
  - Therapeutic response unexpected [Unknown]

NARRATIVE: CASE EVENT DATE: 20150505
